FAERS Safety Report 23313598 (Version 3)
Quarter: 2024Q1

REPORT INFORMATION
  Report Type: Report from Study
  Country: US (occurrence: US)
  Receive Date: 20231219
  Receipt Date: 20240215
  Transmission Date: 20240410
  Serious: Yes (Hospitalization)
  Sender: FDA-Public Use
  Company Number: US-Eisai-EC-2023-155160

PATIENT
  Age: 76 Year
  Sex: Male
  Weight: 79.4 kg

DRUGS (4)
  1. LENVATINIB [Suspect]
     Active Substance: LENVATINIB
     Indication: Prostate cancer metastatic
     Route: 048
     Dates: start: 20230808, end: 20231208
  2. PEMBROLIZUMAB [Suspect]
     Active Substance: PEMBROLIZUMAB
     Indication: Prostate cancer metastatic
     Route: 042
     Dates: start: 20230808, end: 20240102
  3. VANCOMYCIN [Concomitant]
     Active Substance: VANCOMYCIN
     Dates: start: 20231208, end: 20231208
  4. PIPERACILLIN AND TAZOBACTAM [Concomitant]
     Active Substance: PIPERACILLIN SODIUM\TAZOBACTAM SODIUM
     Dates: start: 20231209, end: 20231209

REACTIONS (2)
  - Abdominal abscess [Recovered/Resolved]
  - Acute kidney injury [Recovered/Resolved]

NARRATIVE: CASE EVENT DATE: 20231209
